FAERS Safety Report 8885175 (Version 1)
Quarter: 2012Q4

REPORT INFORMATION
  Report Type: 
  Country: US (occurrence: US)
  Receive Date: 20121102
  Receipt Date: 20121102
  Transmission Date: 20130627
  Serious: No
  Sender: FDA-Public Use
  Company Number: US-PFIZER INC-2012272741

PATIENT
  Age: 47 Year
  Sex: Female
  Weight: 83.9 kg

DRUGS (3)
  1. LYRICA [Suspect]
     Indication: PAIN
     Dosage: 75 mg, 2x/day
     Dates: start: 2012, end: 201210
  2. DOXYCYCLINE [Concomitant]
     Indication: LYME DISEASE
     Dosage: UNK
  3. TOPAMAX [Concomitant]
     Indication: MIGRAINE
     Dosage: 100 mg, daily

REACTIONS (1)
  - Pain [Unknown]
